FAERS Safety Report 15792720 (Version 1)
Quarter: 2019Q1

REPORT INFORMATION
  Report Type: Spontaneous
  Country: US (occurrence: US)
  Receive Date: 20190107
  Receipt Date: 20190107
  Transmission Date: 20190417
  Serious: No
  Sender: FDA-Public Use
  Company Number: US-TORRENT-00006272

PATIENT
  Age: 19 Year
  Sex: Male
  Weight: 83 kg

DRUGS (2)
  1. MINOCYCLINE HYDROCHLORIDE. [Suspect]
     Active Substance: MINOCYCLINE HYDROCHLORIDE
     Indication: ACNE
     Dosage: ONE CAPSULE ON 21-MAY-2018,TWO CAPSULES ON 22-MAY-2018 AND 23-MAY-2018,NEXT CAPSULE ON 24-MAY-2018
     Dates: start: 20180521, end: 20180524
  2. RANITIDINE. [Concomitant]
     Active Substance: RANITIDINE
     Indication: HIATUS HERNIA
     Dosage: UNKNOWN
     Dates: start: 201801

REACTIONS (6)
  - Dissociation [Not Recovered/Not Resolved]
  - Vertigo [Not Recovered/Not Resolved]
  - Anxiety [Not Recovered/Not Resolved]
  - Dizziness [Not Recovered/Not Resolved]
  - Depersonalisation/derealisation disorder [Not Recovered/Not Resolved]
  - Heart rate increased [Not Recovered/Not Resolved]
